FAERS Safety Report 8790112 (Version 1)
Quarter: 2012Q4

REPORT INFORMATION
  Report Type: 
  Country: US (occurrence: US)
  Receive Date: 20120917
  Receipt Date: 20120917
  Transmission Date: 20130627
  Serious: Yes (Death)
  Sender: FDA-Public Use
  Company Number: US-CELGENEUS-163-21880-12091304

PATIENT
  Age: 88 Year
  Sex: Female

DRUGS (1)
  1. REVLIMID [Suspect]
     Indication: MALIGNANT LYMPHOID NEOPLASM
     Dosage: 25 Milligram
     Route: 048
     Dates: start: 20120719, end: 20120905

REACTIONS (1)
  - Death [Fatal]
